FAERS Safety Report 12717570 (Version 1)
Quarter: 2016Q3

REPORT INFORMATION
  Report Type: Spontaneous
  Country: FR (occurrence: FR)
  Receive Date: 20160906
  Receipt Date: 20160906
  Transmission Date: 20161109
  Serious: Yes (Hospitalization)
  Sender: FDA-Public Use
  Company Number: FR-JNJFOC-20160901173

PATIENT
  Age: 67 Year
  Sex: Female

DRUGS (18)
  1. ALDACTAZINE [Suspect]
     Active Substance: ALTHIAZIDE\SPIRONOLACTONE
     Indication: HYPERTENSION
     Dosage: MORNING
     Route: 065
     Dates: start: 20160506, end: 20160727
  2. TARKA [Suspect]
     Active Substance: TRANDOLAPRIL\VERAPAMIL HYDROCHLORIDE
     Indication: HYPERTENSION
     Dosage: IN EVENING
     Route: 065
     Dates: start: 20160506, end: 20160727
  3. LANTUS [Concomitant]
     Active Substance: INSULIN GLARGINE
     Dosage: EVENING
     Route: 065
  4. STAGID [Concomitant]
     Active Substance: METFORMIN PAMOATE
     Dosage: 1.5 TAB
     Route: 065
     Dates: start: 20160722
  5. LEVOTHYROX [Concomitant]
     Active Substance: LEVOTHYROXINE
     Dosage: HALF TABLET IN MORNING ON AN EMPTY STOMACH
     Route: 065
  6. OMEPRAZOLE. [Concomitant]
     Active Substance: OMEPRAZOLE
     Route: 065
  7. ALLERGODIL [Concomitant]
     Active Substance: AZELASTINE
     Dosage: 1 SPRITZ IN EACH NOSTRIL
     Route: 045
  8. LEVOTHYROX [Concomitant]
     Active Substance: LEVOTHYROXINE
     Dosage: MORNING ON AN EMPTY STOMACH
     Route: 065
  9. HALDOL [Suspect]
     Active Substance: HALOPERIDOL
     Indication: PSYCHOTIC DISORDER
     Dosage: 12 DROPS MORNING AND MIDDAY AND 13 DROPS EVENING
     Route: 048
     Dates: end: 20160727
  10. ATORVASTATIN [Concomitant]
     Active Substance: ATORVASTATIN
     Dosage: EVENING
     Route: 065
  11. PARKINANE [Concomitant]
     Active Substance: TRIHEXYPHENIDYL HYDROCHLORIDE
     Dosage: MORNING
     Route: 065
  12. XANAX [Concomitant]
     Active Substance: ALPRAZOLAM
     Dosage: HALF TABLET 1 TO 3 TIMES DAILY
     Route: 065
  13. STAGID [Concomitant]
     Active Substance: METFORMIN PAMOATE
     Route: 065
  14. CETIRIZINE [Concomitant]
     Active Substance: CETIRIZINE HYDROCHLORIDE
     Dosage: EVENING FOR 3 MONTHS
     Route: 065
  15. SEROPLEX [Suspect]
     Active Substance: ESCITALOPRAM OXALATE
     Indication: PRODUCT USED FOR UNKNOWN INDICATION
     Route: 065
     Dates: start: 20160715, end: 20160727
  16. UVEDOSE [Concomitant]
     Active Substance: CHOLECALCIFEROL
     Dosage: 1 VIAL
     Route: 065
  17. LOPERAMIDE [Concomitant]
     Active Substance: LOPERAMIDE
     Indication: DIARRHOEA
     Route: 065
  18. SPAGLUMIC ACID [Concomitant]
     Dosage: 19.6 MG/0.4 ML 1 INSTILLATION 2 TO 6 TIMES DAILY
     Route: 065

REACTIONS (3)
  - Inappropriate antidiuretic hormone secretion [Recovered/Resolved]
  - Hyponatraemia [Recovered/Resolved]
  - Self-medication [Unknown]

NARRATIVE: CASE EVENT DATE: 20160725
